FAERS Safety Report 11110226 (Version 1)
Quarter: 2015Q2

REPORT INFORMATION
  Report Type: Spontaneous
  Country: GR (occurrence: GR)
  Receive Date: 20150513
  Receipt Date: 20150513
  Transmission Date: 20150821
  Serious: Yes (Hospitalization)
  Sender: FDA-Public Use
  Company Number: GR-BAYER-2015-202752

PATIENT
  Age: 15 Year
  Sex: Female

DRUGS (1)
  1. GADOVIST [Suspect]
     Active Substance: GADOBUTROL
     Indication: NUCLEAR MAGNETIC RESONANCE IMAGING HEART
     Dosage: 10 ML, ONCE
     Route: 042
     Dates: start: 201505, end: 201505

REACTIONS (1)
  - Rash pruritic [None]

NARRATIVE: CASE EVENT DATE: 201505
